FAERS Safety Report 9421237 (Version 2)
Quarter: 2013Q3

REPORT INFORMATION
  Report Type: Spontaneous
  Country: US (occurrence: US)
  Receive Date: 20130725
  Receipt Date: 20130801
  Transmission Date: 20140515
  Serious: Yes (Hospitalization)
  Sender: FDA-Public Use
  Company Number: US-BAXTER-2013BAX028549

PATIENT
  Age: 33 Year
  Sex: Female

DRUGS (1)
  1. DIANEAL LOW CALCIUM [Suspect]
     Indication: PERITONEAL DIALYSIS
     Route: 033
     Dates: start: 2013

REACTIONS (4)
  - Abdominal wall haematoma [Recovering/Resolving]
  - Muscle rupture [Recovering/Resolving]
  - Respiratory tract congestion [Recovering/Resolving]
  - Cough [Unknown]
